FAERS Safety Report 6118777-6 (Version None)
Quarter: 2009Q1

REPORT INFORMATION
  Report Type: 
  Country: None (occurrence: None)
  Receive Date: 20090314
  Receipt Date: 20090227
  Transmission Date: 20090719
  Serious: No
  Sender: FDA-Public Use
  Company Number: US-ABBOTT-09P-163-0559902-00

PATIENT
  Sex: Male
  Weight: 71.278 kg

DRUGS (7)
  1. HUMIRA [Suspect]
     Indication: CROHN'S DISEASE
     Route: 058
     Dates: start: 20070101
  2. METHOTREXATE [Concomitant]
     Indication: CROHN'S DISEASE
  3. FOLIC ACID [Concomitant]
     Indication: CROHN'S DISEASE
     Route: 048
  4. UNKNOWN PROBIOTICS [Concomitant]
     Indication: CROHN'S DISEASE
  5. OMEGA 3 VITAMIN [Concomitant]
     Indication: DRUG USE FOR UNKNOWN INDICATION
  6. YEAST DEFENSE [Concomitant]
     Indication: INFLAMMATION
  7. MULTI-VITAMIN [Concomitant]
     Indication: DRUG USE FOR UNKNOWN INDICATION
     Route: 048

REACTIONS (5)
  - ABDOMINAL DISTENSION [None]
  - ABDOMINAL PAIN [None]
  - HYPOPHAGIA [None]
  - INCORRECT DOSE ADMINISTERED [None]
  - WEIGHT DECREASED [None]
